FAERS Safety Report 7184558-8 (Version None)
Quarter: 2010Q4

REPORT INFORMATION
  Report Type: 
  Country: None (occurrence: None)
  Receive Date: 20101222
  Receipt Date: 20101209
  Transmission Date: 20110411
  Serious: Yes (Hospitalization)
  Sender: FDA-Public Use
  Company Number: US-ELI_LILLY_AND_COMPANY-US201012002661

PATIENT
  Sex: Male

DRUGS (2)
  1. BYETTA [Suspect]
     Indication: TYPE 1 DIABETES MELLITUS
     Dosage: 10 UG, UNKNOWN
     Route: 058
  2. INSULIN [Concomitant]
     Dosage: 1 D/F, UNKNOWN
     Route: 058

REACTIONS (5)
  - ASTHMA [None]
  - BLOOD GLUCOSE INCREASED [None]
  - NAUSEA [None]
  - OFF LABEL USE [None]
  - VOMITING [None]
